FAERS Safety Report 11592404 (Version 4)
Quarter: 2015Q4

REPORT INFORMATION
  Report Type: Spontaneous
  Country: US (occurrence: US)
  Receive Date: 20151005
  Receipt Date: 20151207
  Transmission Date: 20160304
  Serious: Yes (Other)
  Sender: FDA-Public Use
  Company Number: US-ROCHE-ITM201505IM015836

PATIENT
  Age: 68 Year
  Sex: Male
  Weight: 83.99 kg

DRUGS (3)
  1. ESBRIET [Suspect]
     Active Substance: PIRFENIDONE
     Dosage: TOTAL 6 CAPSULES.
     Route: 048
  2. ESBRIET [Suspect]
     Active Substance: PIRFENIDONE
     Dosage: 1-3 TAB TID
     Route: 048
     Dates: start: 20141230, end: 20150917
  3. ESBRIET [Suspect]
     Active Substance: PIRFENIDONE
     Indication: IDIOPATHIC PULMONARY FIBROSIS
     Dosage: TOTAL 9 CAPSULE
     Route: 048
     Dates: start: 20150209

REACTIONS (6)
  - Weight decreased [Recovering/Resolving]
  - Drug intolerance [Unknown]
  - Dyspnoea [Recovering/Resolving]
  - Fatigue [Not Recovered/Not Resolved]
  - Lethargy [Unknown]
  - Asthenia [Unknown]

NARRATIVE: CASE EVENT DATE: 20150614
